FAERS Safety Report 20859868 (Version 3)
Quarter: 2023Q2

REPORT INFORMATION
  Report Type: Report from Study
  Country: US (occurrence: US)
  Receive Date: 20220523
  Receipt Date: 20230524
  Transmission Date: 20230721
  Serious: Yes (Hospitalization)
  Sender: FDA-Public Use
  Company Number: US-ARGENX-2022-ARGX-US000794

PATIENT
  Sex: Female
  Weight: 88.2 kg

DRUGS (1)
  1. VYVGART [Suspect]
     Active Substance: EFGARTIGIMOD ALFA-FCAB
     Indication: Myasthenia gravis
     Dosage: UNK
     Route: 042
     Dates: start: 20220502

REACTIONS (4)
  - Infection [Unknown]
  - Sepsis [Unknown]
  - Therapy non-responder [Unknown]
  - Dizziness [Recovered/Resolved]
